FAERS Safety Report 7945742-6 (Version None)
Quarter: 2011Q4

REPORT INFORMATION
  Report Type: 
  Country: None (occurrence: None)
  Receive Date: 20111122
  Receipt Date: 20111117
  Transmission Date: 20120403
  Serious: Yes (Other)
  Sender: FDA-Public Use
  Company Number: A0952006A

PATIENT
  Age: 58 Year
  Sex: Female

DRUGS (1)
  1. BEANO (FORMULATION UNKNOWN) (ALPHA-D-GALACTOSIDASE) [Suspect]
     Dosage: ORAL
     Route: 048

REACTIONS (11)
  - NECK PAIN [None]
  - ARTHRALGIA [None]
  - PAIN IN EXTREMITY [None]
  - DYSPNOEA [None]
  - CHEST PAIN [None]
  - PAIN [None]
  - ADVERSE EVENT [None]
  - HALLUCINATION, AUDITORY [None]
  - ABDOMINAL PAIN UPPER [None]
  - HEADACHE [None]
  - BACK PAIN [None]
